FAERS Safety Report 25069647 (Version 1)
Quarter: 2025Q1

REPORT INFORMATION
  Report Type: Spontaneous
  Country: US (occurrence: US)
  Receive Date: 20250312
  Receipt Date: 20250312
  Transmission Date: 20250408
  Serious: Yes (Other)
  Sender: MYLAN
  Company Number: US-MYLANLABS-2025M1020417

PATIENT
  Sex: Male
  Weight: 102.06 kg

DRUGS (48)
  1. DOXAZOSIN [Suspect]
     Active Substance: DOXAZOSIN MESYLATE
     Indication: Blood pressure abnormal
     Dosage: 8 MILLIGRAM, BID (TWICE A DAY)
  2. DOXAZOSIN [Suspect]
     Active Substance: DOXAZOSIN MESYLATE
     Dosage: 8 MILLIGRAM, BID (TWICE A DAY)
     Route: 065
  3. DOXAZOSIN [Suspect]
     Active Substance: DOXAZOSIN MESYLATE
     Dosage: 8 MILLIGRAM, BID (TWICE A DAY)
     Route: 065
  4. DOXAZOSIN [Suspect]
     Active Substance: DOXAZOSIN MESYLATE
     Dosage: 8 MILLIGRAM, BID (TWICE A DAY)
  5. DILTIAZEM [Suspect]
     Active Substance: DILTIAZEM
     Indication: Product used for unknown indication
     Dosage: UNK, QD (ONCE AT MIDNIGHT)
     Dates: start: 2021
  6. DILTIAZEM [Suspect]
     Active Substance: DILTIAZEM
     Dosage: UNK, QD (ONCE AT MIDNIGHT)
     Route: 065
     Dates: start: 2021
  7. DILTIAZEM [Suspect]
     Active Substance: DILTIAZEM
     Dosage: UNK, QD (ONCE AT MIDNIGHT)
     Route: 065
     Dates: start: 2021
  8. DILTIAZEM [Suspect]
     Active Substance: DILTIAZEM
     Dosage: UNK, QD (ONCE AT MIDNIGHT)
     Dates: start: 2021
  9. CLONIDINE [Suspect]
     Active Substance: CLONIDINE
     Indication: Hypertension
     Dosage: UNK, TID (0.2, THREE TIMES A DAY)
  10. CLONIDINE [Suspect]
     Active Substance: CLONIDINE
     Dosage: UNK, TID (0.2, THREE TIMES A DAY)
  11. CLONIDINE [Suspect]
     Active Substance: CLONIDINE
     Dosage: UNK, TID (0.2, THREE TIMES A DAY)
     Route: 065
  12. CLONIDINE [Suspect]
     Active Substance: CLONIDINE
     Dosage: UNK, TID (0.2, THREE TIMES A DAY)
     Route: 065
  13. CLONIDINE [Suspect]
     Active Substance: CLONIDINE
     Dosage: UNK UNK, QID (0.2, FOUR TIMES A DAY)
  14. CLONIDINE [Suspect]
     Active Substance: CLONIDINE
     Dosage: UNK UNK, QID (0.2, FOUR TIMES A DAY)
  15. CLONIDINE [Suspect]
     Active Substance: CLONIDINE
     Dosage: UNK UNK, QID (0.2, FOUR TIMES A DAY)
     Route: 065
  16. CLONIDINE [Suspect]
     Active Substance: CLONIDINE
     Dosage: UNK UNK, QID (0.2, FOUR TIMES A DAY)
     Route: 065
  17. ISOSORBIDE [Suspect]
     Active Substance: ISOSORBIDE
     Indication: Product used for unknown indication
  18. ISOSORBIDE [Suspect]
     Active Substance: ISOSORBIDE
     Route: 065
  19. ISOSORBIDE [Suspect]
     Active Substance: ISOSORBIDE
     Route: 065
  20. ISOSORBIDE [Suspect]
     Active Substance: ISOSORBIDE
  21. SERTRALINE [Suspect]
     Active Substance: SERTRALINE HYDROCHLORIDE
     Indication: Product used for unknown indication
     Dosage: UNK, BID (HALF A TABLET, TWICE A DAY)
  22. SERTRALINE [Suspect]
     Active Substance: SERTRALINE HYDROCHLORIDE
     Dosage: UNK, BID (HALF A TABLET, TWICE A DAY)
     Route: 065
  23. SERTRALINE [Suspect]
     Active Substance: SERTRALINE HYDROCHLORIDE
     Dosage: UNK, BID (HALF A TABLET, TWICE A DAY)
     Route: 065
  24. SERTRALINE [Suspect]
     Active Substance: SERTRALINE HYDROCHLORIDE
     Dosage: UNK, BID (HALF A TABLET, TWICE A DAY)
  25. LEVOTHYROXINE [Suspect]
     Active Substance: LEVOTHYROXINE
     Indication: Thyroid disorder
     Dosage: 100 MICROGRAM, QD (ONE TIME A DAY)
  26. LEVOTHYROXINE [Suspect]
     Active Substance: LEVOTHYROXINE
     Dosage: 100 MICROGRAM, QD (ONE TIME A DAY)
     Route: 065
  27. LEVOTHYROXINE [Suspect]
     Active Substance: LEVOTHYROXINE
     Dosage: 100 MICROGRAM, QD (ONE TIME A DAY)
     Route: 065
  28. LEVOTHYROXINE [Suspect]
     Active Substance: LEVOTHYROXINE
     Dosage: 100 MICROGRAM, QD (ONE TIME A DAY)
  29. OLMESARTAN [Suspect]
     Active Substance: OLMESARTAN
     Indication: Product used for unknown indication
  30. OLMESARTAN [Suspect]
     Active Substance: OLMESARTAN
     Route: 065
  31. OLMESARTAN [Suspect]
     Active Substance: OLMESARTAN
     Route: 065
  32. OLMESARTAN [Suspect]
     Active Substance: OLMESARTAN
  33. TRESIBA [Suspect]
     Active Substance: INSULIN DEGLUDEC
     Indication: Diabetes mellitus
  34. TRESIBA [Suspect]
     Active Substance: INSULIN DEGLUDEC
     Route: 065
  35. TRESIBA [Suspect]
     Active Substance: INSULIN DEGLUDEC
     Route: 065
  36. TRESIBA [Suspect]
     Active Substance: INSULIN DEGLUDEC
  37. HYDROCHLOROTHIAZIDE [Suspect]
     Active Substance: HYDROCHLOROTHIAZIDE
     Indication: Product used for unknown indication
     Dosage: UNK, QD (12.5, ONCE A DAY)
  38. HYDROCHLOROTHIAZIDE [Suspect]
     Active Substance: HYDROCHLOROTHIAZIDE
     Dosage: UNK, QD (12.5, ONCE A DAY)
     Route: 065
  39. HYDROCHLOROTHIAZIDE [Suspect]
     Active Substance: HYDROCHLOROTHIAZIDE
     Dosage: UNK, QD (12.5, ONCE A DAY)
     Route: 065
  40. HYDROCHLOROTHIAZIDE [Suspect]
     Active Substance: HYDROCHLOROTHIAZIDE
     Dosage: UNK, QD (12.5, ONCE A DAY)
  41. NIACIN [Suspect]
     Active Substance: NIACIN
     Indication: Product used for unknown indication
  42. NIACIN [Suspect]
     Active Substance: NIACIN
     Route: 065
  43. NIACIN [Suspect]
     Active Substance: NIACIN
     Route: 065
  44. NIACIN [Suspect]
     Active Substance: NIACIN
  45. FENOFIBRATE [Suspect]
     Active Substance: FENOFIBRATE
     Indication: Blood cholesterol
     Dosage: 145 MILLIGRAM, QD (ONE TIME A DAY)
  46. FENOFIBRATE [Suspect]
     Active Substance: FENOFIBRATE
     Dosage: 145 MILLIGRAM, QD (ONE TIME A DAY)
     Route: 065
  47. FENOFIBRATE [Suspect]
     Active Substance: FENOFIBRATE
     Dosage: 145 MILLIGRAM, QD (ONE TIME A DAY)
     Route: 065
  48. FENOFIBRATE [Suspect]
     Active Substance: FENOFIBRATE
     Dosage: 145 MILLIGRAM, QD (ONE TIME A DAY)

REACTIONS (12)
  - Eye operation [Unknown]
  - Ichthyosis [Unknown]
  - Thrombosis [Unknown]
  - Blister [Unknown]
  - Lymphoedema [Unknown]
  - Fluid retention [Unknown]
  - Dermatitis [Unknown]
  - Weight increased [Unknown]
  - Bradycardia [Unknown]
  - Constipation [Unknown]
  - Rash [Unknown]
  - Oedema [Unknown]
